FAERS Safety Report 6215518-9 (Version None)
Quarter: 2009Q2

REPORT INFORMATION
  Report Type: 
  Country: None (occurrence: None)
  Receive Date: 20090603
  Receipt Date: 20090520
  Transmission Date: 20091009
  Serious: Yes (Hospitalization, Other)
  Sender: FDA-Public Use
  Company Number: 2009AL003455

PATIENT
  Age: 23 Year
  Sex: Male

DRUGS (1)
  1. CARISOPRODOL [Suspect]
     Indication: DRUG ABUSE
     Dosage: 2100 MG; QD

REACTIONS (6)
  - AMNESIA [None]
  - DRUG ABUSE [None]
  - DRUG DEPENDENCE [None]
  - LOSS OF CONSCIOUSNESS [None]
  - PAIN [None]
  - WITHDRAWAL SYNDROME [None]
